FAERS Safety Report 11608868 (Version 1)
Quarter: 2015Q4

REPORT INFORMATION
  Report Type: Spontaneous
  Country: PL (occurrence: PL)
  Receive Date: 20151007
  Receipt Date: 20151007
  Transmission Date: 20160304
  Serious: Yes (Other)
  Sender: FDA-Public Use
  Company Number: PL-JNJFOC-20151004355

PATIENT
  Sex: Male

DRUGS (1)
  1. XARELTO [Suspect]
     Active Substance: RIVAROXABAN
     Indication: PRODUCT USED FOR UNKNOWN INDICATION
     Route: 048
     Dates: start: 201504, end: 20150508

REACTIONS (7)
  - Nightmare [Unknown]
  - Heart rate decreased [Unknown]
  - Oedema peripheral [Unknown]
  - Gingival bleeding [Unknown]
  - Feeling cold [Unknown]
  - Feeling hot [Unknown]
  - Hypertension [Unknown]
